APPROVED DRUG PRODUCT: VARDENAFIL HYDROCHLORIDE
Active Ingredient: VARDENAFIL HYDROCHLORIDE
Strength: EQ 10MG BASE
Dosage Form/Route: TABLET;ORAL
Application: A214031 | Product #003 | TE Code: AB
Applicant: ALEMBIC PHARMACEUTICALS LTD
Approved: Aug 4, 2020 | RLD: No | RS: No | Type: RX